FAERS Safety Report 5241572-7 (Version None)
Quarter: 2007Q1

REPORT INFORMATION
  Report Type: 
  Country: None (occurrence: None)
  Receive Date: 20070220
  Receipt Date: 20070209
  Transmission Date: 20070707
  Serious: Yes (Death, Hospitalization)
  Sender: FDA-Public Use
  Company Number: US-AVENTIS-200711249GDDC

PATIENT
  Age: 68 Year
  Sex: Female

DRUGS (10)
  1. DOCETAXEL [Suspect]
     Route: 042
     Dates: start: 20070117, end: 20070117
  2. OXALIPLATIN [Suspect]
     Route: 042
     Dates: start: 20070117, end: 20070117
  3. BEVACIZUMAB [Suspect]
     Route: 042
     Dates: start: 20070117, end: 20070117
  4. SINGULAIR [Concomitant]
     Dosage: DOSE: UNK
  5. DEXAMETHASONE [Concomitant]
     Dosage: DOSE: UNK
  6. FLUCONAZOLE [Concomitant]
     Dosage: DOSE: UNK
  7. ATIVAN [Concomitant]
     Dosage: DOSE: UNK
  8. COMPAZINE [Concomitant]
     Dosage: DOSE: UNK
  9. BENADRYL                           /00000402/ [Concomitant]
     Dosage: DOSE: UNK
  10. LISINOPRIL [Concomitant]
     Dosage: DOSE: UNK

REACTIONS (4)
  - ABDOMINAL PAIN [None]
  - DEATH [None]
  - PNEUMONIA [None]
  - SEPSIS [None]
